FAERS Safety Report 4902668-X (Version None)
Quarter: 2006Q1

REPORT INFORMATION
  Report Type: 
  Country: None (occurrence: None)
  Receive Date: 20060207
  Receipt Date: 20050705
  Transmission Date: 20060701
  Serious: Yes (Hospitalization, Other)
  Sender: FDA-Public Use
  Company Number: US-MERCK-0507USA00605

PATIENT
  Age: 57 Year
  Sex: Female

DRUGS (1)
  1. VIOXX [Suspect]
     Route: 048
     Dates: start: 20020101, end: 20040901

REACTIONS (17)
  - ANGINA PECTORIS [None]
  - ANXIETY DISORDER [None]
  - ARTHRITIS [None]
  - CEREBROVASCULAR ACCIDENT [None]
  - DEPRESSION [None]
  - DIABETES MELLITUS INADEQUATE CONTROL [None]
  - DIABETES MELLITUS NON-INSULIN-DEPENDENT [None]
  - DIABETIC NEPHROPATHY [None]
  - HYPERTENSION [None]
  - HYPOKALAEMIA [None]
  - HYPOTHYROIDISM [None]
  - LOSS OF CONSCIOUSNESS [None]
  - OBESITY [None]
  - RENAL FAILURE [None]
  - RETINAL HAEMORRHAGE [None]
  - SYNCOPE VASOVAGAL [None]
  - TRANSIENT ISCHAEMIC ATTACK [None]
